FAERS Safety Report 24566495 (Version 1)
Quarter: 2024Q4

REPORT INFORMATION
  Report Type: Spontaneous
  Country: US (occurrence: None)
  Receive Date: 20241030
  Receipt Date: 20241030
  Transmission Date: 20250115
  Serious: No
  Sender: Public
  Company Number: None

PATIENT
  Sex: Female
  Weight: 45 kg

DRUGS (3)
  1. FLUOROURACIL [Suspect]
     Active Substance: FLUOROURACIL
     Dosage: OTHER FREQUENCY : 48 HOUR INFUSION;?
     Dates: end: 20241018
  2. LEUCOVORIN CALCIUM [Suspect]
     Active Substance: LEUCOVORIN CALCIUM
     Dates: end: 20241016
  3. ELOXATIN [Suspect]
     Active Substance: OXALIPLATIN
     Dates: end: 20241016

REACTIONS (7)
  - Therapy change [None]
  - Tearfulness [None]
  - Emotional distress [None]
  - Hypophagia [None]
  - Retching [None]
  - Weight decreased [None]
  - Hypokalaemia [None]

NARRATIVE: CASE EVENT DATE: 20241028
